FAERS Safety Report 12499716 (Version 3)
Quarter: 2017Q3

REPORT INFORMATION
  Report Type: Spontaneous
  Country: US (occurrence: US)
  Receive Date: 20160627
  Receipt Date: 20170724
  Transmission Date: 20171127
  Serious: Yes (Life-Threatening, Hospitalization)
  Sender: FDA-Public Use
  Company Number: PHHY2016US084937

PATIENT
  Age: 11 Month
  Sex: Male

DRUGS (1)
  1. METHADONE [Suspect]
     Active Substance: METHADONE HYDROCHLORIDE
     Indication: PRODUCT USED FOR UNKNOWN INDICATION
     Route: 065

REACTIONS (9)
  - Bradypnoea [Unknown]
  - Respiration abnormal [Unknown]
  - Hypoglycaemia [Recovered/Resolved]
  - Respiratory failure [Unknown]
  - Hypotension [Unknown]
  - Accidental exposure to product by child [Unknown]
  - Cyanosis [Unknown]
  - Miosis [Unknown]
  - Somnolence [Unknown]
